FAERS Safety Report 18203767 (Version 1)
Quarter: 2020Q3

REPORT INFORMATION
  Report Type: Spontaneous
  Country: US (occurrence: US)
  Receive Date: 20200827
  Receipt Date: 20200827
  Transmission Date: 20201103
  Serious: Yes (Hospitalization, Disabling, Congenital Anomaly, Other)
  Sender: FDA-Public Use
  Company Number: US-PURDUE-USA-2020-0163396

PATIENT
  Sex: Male

DRUGS (1)
  1. OXYCONTIN [Suspect]
     Active Substance: OXYCODONE HYDROCHLORIDE
     Indication: PRODUCT USED FOR UNKNOWN INDICATION
     Dosage: UNK
     Route: 064

REACTIONS (9)
  - Congenital anomaly [Unknown]
  - Language disorder [Unknown]
  - Hospitalisation [None]
  - Attention deficit hyperactivity disorder [Unknown]
  - Fear [Unknown]
  - Foetal exposure during pregnancy [Unknown]
  - Learning disability [Unknown]
  - Growth retardation [Unknown]
  - Anxiety [Unknown]
